FAERS Safety Report 9892604 (Version 3)
Quarter: 2014Q1

REPORT INFORMATION
  Report Type: Spontaneous
  Country: IT (occurrence: IT)
  Receive Date: 20140212
  Receipt Date: 20140225
  Transmission Date: 20141002
  Serious: Yes (Hospitalization)
  Sender: FDA-Public Use
  Company Number: PHHY2014IT016587

PATIENT
  Age: 61 Year
  Sex: Female

DRUGS (7)
  1. TEGRETOL [Suspect]
     Indication: INTENTIONAL SELF-INJURY
     Dosage: 4000 MG, ONCE/SINGLE
     Route: 048
     Dates: start: 20140117, end: 20140117
  2. GABAPENTIN [Concomitant]
     Dosage: 400 MG, UNK
     Route: 048
  3. CITALOPRAM [Concomitant]
     Dosage: 20 GTT, UNK
     Route: 048
  4. PRAZENE [Concomitant]
     Dosage: UNK UKN, UNK
  5. XERISTAR [Concomitant]
     Dosage: UNK UKN, UNK
  6. FELISON [Concomitant]
     Dosage: UNK UKN, UNK
  7. RISPERDAL [Concomitant]
     Dosage: UNK UKN, UNK

REACTIONS (5)
  - Intentional self-injury [Recovered/Resolved]
  - Bradykinesia [Recovered/Resolved]
  - Bradyphrenia [Recovered/Resolved]
  - Confusional state [Recovered/Resolved]
  - Tachycardia [Recovered/Resolved]
